FAERS Safety Report 24170030 (Version 1)
Quarter: 2024Q3

REPORT INFORMATION
  Report Type: Report from Study
  Country: US (occurrence: US)
  Receive Date: 20240803
  Receipt Date: 20240803
  Transmission Date: 20241017
  Serious: Yes (Other)
  Sender: ABBVIE
  Company Number: US-ABBVIE-5863058

PATIENT
  Sex: Female

DRUGS (3)
  1. IMBRUVICA [Suspect]
     Active Substance: IBRUTINIB
     Indication: Chronic lymphocytic leukaemia
     Route: 048
     Dates: start: 202101, end: 202405
  2. IMBRUVICA [Suspect]
     Active Substance: IBRUTINIB
     Indication: Chronic lymphocytic leukaemia
     Route: 048
     Dates: start: 202407
  3. BRUKINSA [Suspect]
     Active Substance: ZANUBRUTINIB
     Indication: Product used for unknown indication
     Route: 065
     Dates: start: 202406, end: 202407

REACTIONS (9)
  - Acute leukaemia [Unknown]
  - Epistaxis [Unknown]
  - Skin ulcer [Unknown]
  - Rash [Unknown]
  - Rash papular [Unknown]
  - White blood cell disorder [Unknown]
  - Illness [Unknown]
  - Nasal ulcer [Unknown]
  - Drug ineffective [Unknown]
